FAERS Safety Report 7555577-4 (Version None)
Quarter: 2011Q2

REPORT INFORMATION
  Report Type: 
  Country: None (occurrence: None)
  Receive Date: 20110617
  Receipt Date: 20070608
  Transmission Date: 20111010
  Serious: Yes (Hospitalization, Other)
  Sender: FDA-Public Use
  Company Number: PHMT2007CA01320

PATIENT
  Sex: Female

DRUGS (5)
  1. AMARYL [Concomitant]
     Dosage: 8 MG, QD
  2. SYNTHROID [Concomitant]
     Dosage: 100 UG, QD
  3. DIOVAN HCT [Suspect]
     Indication: HYPERTENSION
     Dosage: 80/125 MG, QD
     Route: 048
     Dates: start: 20070501
  4. ASPIRIN [Concomitant]
     Dosage: 80 MG, QD
     Route: 048
  5. NORVASC [Concomitant]
     Dosage: 5 MG, QD

REACTIONS (5)
  - RENAL FAILURE [None]
  - BLOOD PRESSURE INCREASED [None]
  - HAEMATURIA [None]
  - DIABETIC NEPHROPATHY [None]
  - BLOOD CREATININE INCREASED [None]
